FAERS Safety Report 17729053 (Version 18)
Quarter: 2022Q1

REPORT INFORMATION
  Report Type: Report from Study
  Country: CA (occurrence: CA)
  Receive Date: 20200430
  Receipt Date: 20220220
  Transmission Date: 20220423
  Serious: Yes (Hospitalization, Other)
  Sender: FDA-Public Use
  Company Number: PHHY2017CA070293

PATIENT
  Age: 70 Year
  Sex: Female

DRUGS (16)
  1. SANDOSTATIN LAR DEPOT [Suspect]
     Active Substance: OCTREOTIDE ACETATE
     Indication: Neuroendocrine carcinoma
     Dosage: 60 MG, Q2W
     Route: 030
     Dates: start: 20140604
  2. SANDOSTATIN LAR DEPOT [Suspect]
     Active Substance: OCTREOTIDE ACETATE
     Dosage: 30 MG, QMO
     Route: 030
     Dates: start: 20140604
  3. SANDOSTATIN LAR DEPOT [Suspect]
     Active Substance: OCTREOTIDE ACETATE
     Dosage: 30 MG, TIW
     Route: 030
  4. SANDOSTATIN LAR DEPOT [Suspect]
     Active Substance: OCTREOTIDE ACETATE
     Dosage: 60 MG, QMO
     Route: 030
     Dates: start: 20151211, end: 20170808
  5. SANDOSTATIN LAR DEPOT [Suspect]
     Active Substance: OCTREOTIDE ACETATE
     Dosage: 60 MG, BIW
     Route: 030
     Dates: start: 20170824
  6. SANDOSTATIN LAR DEPOT [Suspect]
     Active Substance: OCTREOTIDE ACETATE
     Dosage: 60 MG, BIW
     Route: 030
     Dates: start: 20190219
  7. SANDOSTATIN LAR DEPOT [Suspect]
     Active Substance: OCTREOTIDE ACETATE
     Dosage: 60 MG, BIW
     Route: 030
  8. SANDOSTATIN LAR DEPOT [Suspect]
     Active Substance: OCTREOTIDE ACETATE
     Dosage: 60 MG, BIW
     Route: 030
     Dates: start: 20200623
  9. SANDOSTATIN LAR DEPOT [Suspect]
     Active Substance: OCTREOTIDE ACETATE
     Dosage: 30 MG, QMO
     Route: 030
  10. OCTREOTIDE [Concomitant]
     Active Substance: OCTREOTIDE
     Indication: Product used for unknown indication
     Dosage: UNK, BID
     Route: 058
     Dates: start: 2021
  11. HYDROMORPHONE [Concomitant]
     Active Substance: HYDROMORPHONE
     Indication: Product used for unknown indication
     Dosage: UNK
     Route: 065
  12. MORPHINE [Concomitant]
     Active Substance: MORPHINE
     Indication: Pain management
     Dosage: UNK UNK, Q12H (LONG ACTING)
     Route: 065
  13. MORPHINE [Concomitant]
     Active Substance: MORPHINE
     Dosage: 1 DF, PRN
     Route: 048
  14. CIPRO [Concomitant]
     Active Substance: CIPROFLOXACIN HYDROCHLORIDE
     Indication: Product used for unknown indication
     Dosage: 500 MG, BID (X 10 DAYS)
     Route: 065
  15. FUROSEMIDE [Concomitant]
     Active Substance: FUROSEMIDE
     Indication: Pain management
     Dosage: 20 MG
     Route: 065
  16. FUROSEMIDE [Concomitant]
     Active Substance: FUROSEMIDE
     Dosage: 40 MG
     Route: 065

REACTIONS (31)
  - Intestinal obstruction [Unknown]
  - Chest pain [Unknown]
  - Kidney infection [Unknown]
  - Vaginal haemorrhage [Unknown]
  - Pyrexia [Unknown]
  - Blood pressure systolic increased [Unknown]
  - Blood pressure increased [Recovering/Resolving]
  - Hydronephrosis [Unknown]
  - Ureteric obstruction [Unknown]
  - Nephritis [Unknown]
  - Abdominal infection [Unknown]
  - Neuroendocrine tumour [Unknown]
  - Malignant neoplasm progression [Unknown]
  - Blood pressure diastolic decreased [Unknown]
  - Serum serotonin increased [Unknown]
  - Lymphadenopathy [Unknown]
  - Gastric disorder [Unknown]
  - Muscle tightness [Unknown]
  - Hepatic lesion [Unknown]
  - Myalgia [Unknown]
  - Bacterial test positive [Unknown]
  - Joint swelling [Recovering/Resolving]
  - Urinary tract infection [Unknown]
  - Micturition urgency [Unknown]
  - Oedema peripheral [Unknown]
  - Dysuria [Unknown]
  - Peripheral swelling [Unknown]
  - Needle issue [Unknown]
  - Injection site mass [Unknown]
  - Injection site pain [Unknown]
  - Inappropriate schedule of product administration [Unknown]

NARRATIVE: CASE EVENT DATE: 20171031
